FAERS Safety Report 7483231-6 (Version None)
Quarter: 2011Q2

REPORT INFORMATION
  Report Type: 
  Country: None (occurrence: None)
  Receive Date: 20110516
  Receipt Date: 20110407
  Transmission Date: 20111010
  Serious: Yes (Hospitalization, Other)
  Sender: FDA-Public Use
  Company Number: PHHY2010NL50230

PATIENT
  Sex: Male

DRUGS (14)
  1. ZOMETA [Suspect]
     Dosage: 4 MG/5 ML
     Dates: start: 20100701
  2. ZOMETA [Suspect]
     Dosage: 4 MG/5 ML
     Dates: start: 20100729
  3. ZOMETA [Suspect]
     Dosage: 4 MG/5 ML
     Dates: start: 20100922
  4. BICALUTAMIDE [Concomitant]
     Dosage: UNK
  5. LYRICA [Concomitant]
     Dosage: UNK
  6. PERINDOPRIL ERBUMINE [Concomitant]
     Dosage: 4 MG
  7. DIAZEPAM [Concomitant]
  8. METOPROLOL SUCCINATE [Concomitant]
     Dosage: UNK
  9. ZOMETA [Suspect]
     Dosage: 4 MG/5 ML
     Dates: start: 20100603
  10. ZOMETA [Suspect]
     Dosage: 4 MG/5 ML
     Route: 042
     Dates: start: 20101021
  11. ZOMETA [Suspect]
     Dosage: 4 MG/5 ML
     Dates: start: 20100506
  12. ZOMETA [Suspect]
     Dosage: 4 MG/5 ML
     Dates: start: 20100825
  13. ZOMETA [Suspect]
     Dosage: 4 MG/5 ML IN 20 MIN
     Route: 042
     Dates: start: 20100409
  14. PERINDOPRIL ERBUMINE [Concomitant]
     Dosage: 2 MG

REACTIONS (10)
  - FATIGUE [None]
  - CONFUSIONAL STATE [None]
  - CONSTIPATION [None]
  - BACK PAIN [None]
  - METASTASIS [None]
  - ARTHRALGIA [None]
  - HAEMOGLOBIN DECREASED [None]
  - GAIT DISTURBANCE [None]
  - DIZZINESS [None]
  - OEDEMA PERIPHERAL [None]
